FAERS Safety Report 7554571-7 (Version None)
Quarter: 2011Q2

REPORT INFORMATION
  Report Type: 
  Country: None (occurrence: None)
  Receive Date: 20110617
  Receipt Date: 20110608
  Transmission Date: 20111010
  Serious: Yes (Death)
  Sender: FDA-Public Use
  Company Number: MX-SANOFI-AVENTIS-2011SA036546

PATIENT
  Age: 78 Year
  Sex: Female

DRUGS (5)
  1. ASPIRIN [Concomitant]
     Dates: end: 20100428
  2. AMARYL [Suspect]
     Indication: DIABETES MELLITUS
     Dates: start: 20091001, end: 20100428
  3. ALL OTHER THERAPEUTIC PRODUCTS [Concomitant]
     Dates: end: 20100428
  4. ALL OTHER THERAPEUTIC PRODUCTS [Concomitant]
     Dates: end: 20100428
  5. INSULIN GLARGINE [Suspect]
     Indication: DIABETES MELLITUS
     Route: 058
     Dates: start: 20091001, end: 20110428

REACTIONS (1)
  - CARDIAC FAILURE [None]
